FAERS Safety Report 6994250 (Version 6)
Quarter: 2013Q1

REPORT INFORMATION
  Report Type: Spontaneous
  Country: ES (occurrence: ES)
  Receive Date: 20090514
  Receipt Date: 20130227
  Transmission Date: 20140127
  Serious: Yes (Death, Life-Threatening, Hospitalization)
  Sender: FDA-Public Use
  Company Number: ES-BAYER-200920590GPV

PATIENT
  Age: 57 Year
  Sex: Male
  Weight: 85 kg

DRUGS (21)
  1. NEXAVAR [Suspect]
     Indication: HEPATOCELLULAR CARCINOMA
     Dosage: DAILY DOSE 800 MG
     Route: 048
     Dates: start: 20080428, end: 20090322
  2. NEXAVAR [Suspect]
     Indication: HEPATOCELLULAR CARCINOMA
     Route: 048
     Dates: start: 20080428, end: 20090324
  3. EVEROLIMUS [Suspect]
     Indication: HEPATOCELLULAR CARCINOMA
     Dosage: 1.5 MG, BID
     Route: 048
     Dates: start: 2005
  4. CERTICAN [Concomitant]
     Indication: LIVER TRANSPLANT
     Route: 048
     Dates: start: 2007, end: 20090904
  5. ATACAND [CANDESARTAN CILEXETIL] [Concomitant]
     Indication: NEPHROTIC SYNDROME
     Route: 048
     Dates: start: 2008
  6. ADIRO [Concomitant]
     Indication: PLATELET AGGREGATION INHIBITION
     Dosage: DAILY DOSE 100 MG
     Route: 048
  7. TRIALMIN [Concomitant]
     Indication: HYPERTRIGLYCERIDAEMIA
     Dosage: DAILY DOSE 900 MG
     Route: 048
  8. EUGLUCON [Concomitant]
     Indication: TYPE 2 DIABETES MELLITUS
     Route: 048
     Dates: start: 2006
  9. LESCOL [Concomitant]
     Indication: METABOLIC SYNDROME
     Route: 048
     Dates: start: 2006
  10. ATACAND PLUS [Concomitant]
     Indication: HYPERTENSION
  11. RESINCALCIO [Concomitant]
     Indication: HYPERKALAEMIA
     Route: 065
  12. NEURONTIN [Concomitant]
     Indication: DIABETIC NEUROPATHY
     Route: 065
  13. INSULIN [Concomitant]
     Indication: DIABETES MELLITUS
     Route: 065
  14. OMEPRAZOLE [Concomitant]
     Dosage: 40 MG, QD
     Route: 048
  15. FUROSEMIDE [Concomitant]
     Dosage: 40 MG, QD
     Route: 048
  16. ENOXAPARIN [Concomitant]
     Dosage: 40 MG, QD
     Route: 058
  17. CARVEDILOL [Concomitant]
     Dosage: 3.125 MG, BID
     Route: 048
  18. CAPTOPRIL [Concomitant]
     Dosage: 12.5 MG, TID
     Route: 048
  19. ATORVASTATIN [Concomitant]
     Dosage: 80 MG, QD
     Route: 048
  20. LORAZEPAM [Concomitant]
     Dosage: 1 MG, QD
     Route: 048
  21. PARACETAMOL [Concomitant]
     Indication: PAIN
     Dosage: 500 MG, PRN

REACTIONS (15)
  - Cardiogenic shock [Recovered/Resolved with Sequelae]
  - Respiratory failure [Recovered/Resolved with Sequelae]
  - Hypotension [Recovered/Resolved with Sequelae]
  - Metabolic acidosis [Recovered/Resolved with Sequelae]
  - Hypocalcaemia [Recovered/Resolved with Sequelae]
  - Renal failure acute [Recovered/Resolved with Sequelae]
  - Ischaemic hepatitis [Recovered/Resolved with Sequelae]
  - Diarrhoea [Recovered/Resolved with Sequelae]
  - Cardiac failure congestive [Recovered/Resolved with Sequelae]
  - Cardiac failure [Recovered/Resolved]
  - Pulmonary oedema [Recovered/Resolved]
  - Gastrointestinal haemorrhage [Unknown]
  - Shock haemorrhagic [Unknown]
  - Hepatocellular carcinoma [Fatal]
  - Off label use [None]
